FAERS Safety Report 20416737 (Version 1)
Quarter: 2022Q1

REPORT INFORMATION
  Report Type: Spontaneous
  Country: TN (occurrence: TN)
  Receive Date: 20220202
  Receipt Date: 20220202
  Transmission Date: 20220423
  Serious: No
  Sender: FDA-Public Use
  Company Number: TN-LUPIN PHARMACEUTICALS INC.-2022-01204

PATIENT
  Age: 54 Year
  Sex: Female

DRUGS (7)
  1. AZITHROMYCIN [Suspect]
     Active Substance: AZITHROMYCIN
     Indication: COVID-19
     Dosage: 500 MILLIGRAM, QD
     Route: 065
  2. VITAMIN C [Suspect]
     Active Substance: ASCORBIC ACID
     Indication: COVID-19
     Dosage: 1000 MILLIGRAM, QD
     Route: 065
  3. UNSPECIFIED INGREDIENT [Suspect]
     Active Substance: UNSPECIFIED INGREDIENT
     Indication: COVID-19
     Dosage: UNK
     Route: 065
  4. VITAMIN D [Suspect]
     Active Substance: VITAMIN D NOS
     Indication: COVID-19
     Dosage: 20000 INTERNATIONAL UNIT
     Route: 065
  5. AZATHIOPRINE [Concomitant]
     Active Substance: AZATHIOPRINE
     Indication: Myasthenia gravis
     Dosage: 150 MILLIGRAM
     Route: 065
  6. PYRIDOSTIGMINE [Concomitant]
     Active Substance: PYRIDOSTIGMINE
     Indication: Myasthenia gravis
     Dosage: 60 MILLIGRAM X 8
     Route: 065
  7. HUMAN IMMUNOGLOBULIN G [Concomitant]
     Active Substance: HUMAN IMMUNOGLOBULIN G
     Indication: Myasthenia gravis
     Dosage: 0.4 G/KG, QD
     Route: 042

REACTIONS (1)
  - Off label use [Unknown]
